FAERS Safety Report 13679391 (Version 1)
Quarter: 2017Q2

REPORT INFORMATION
  Report Type: Spontaneous
  Country: CH (occurrence: US)
  Receive Date: 20170622
  Receipt Date: 20170622
  Transmission Date: 20170830
  Serious: Yes (Hospitalization)
  Sender: FDA-Public Use
  Company Number: CH-LPDUSPRD-20170792

PATIENT
  Age: 44 Year
  Sex: Male
  Weight: 131.6 kg

DRUGS (20)
  1. LOSARTAN. [Concomitant]
     Active Substance: LOSARTAN
     Dosage: 50 MG
     Route: 048
  2. METOPROLOL TARTRATE. [Concomitant]
     Active Substance: METOPROLOL TARTRATE
     Dosage: 150 MG
     Route: 048
  3. ROSUVASTATIN CALCIUM. [Concomitant]
     Active Substance: ROSUVASTATIN CALCIUM
     Dosage: 20 MG
     Route: 048
  4. INSULIN ASPART [Concomitant]
     Active Substance: INSULIN ASPART
     Dosage: 14 IU BEFORE MEALS
  5. CALCITRIOL. [Concomitant]
     Active Substance: CALCITRIOL
     Dosage: 30 MG
     Route: 048
  6. ISOSORBIDE MONONITRATE. [Concomitant]
     Active Substance: ISOSORBIDE MONONITRATE
     Dosage: EVERY MORNING
     Route: 048
  7. CEFAZOLIN [Concomitant]
     Active Substance: CEFAZOLIN
     Dosage: UNKNOWN
     Route: 042
  8. VENOFER [Suspect]
     Active Substance: IRON SUCROSE
     Dosage: ONE UNSPECIFIED DOSE
     Route: 042
  9. CALCIUM CARBONATE. [Concomitant]
     Active Substance: CALCIUM CARBONATE
     Dosage: 4 TABLETS
     Route: 048
  10. OMEGA-3-ACID ETHYL ESTER [Concomitant]
     Active Substance: OMEGA-3-ACID ETHYL ESTERS
     Dosage: ORAL
     Route: 048
  11. TRIAMINOLONE [Concomitant]
     Dosage: 1 GM
  12. SODIUM POLYSTRENE SULFONATE [Concomitant]
     Dosage: 15 GM
     Route: 048
  13. ACETYLSALICYLIC ACID [Concomitant]
     Active Substance: ASPIRIN
     Dosage: 81 MG
     Route: 048
  14. GLYCERYL TRINITRATE [Concomitant]
     Active Substance: NITROGLYCERIN
     Dosage: 10 GM
     Route: 060
  15. ASCORBIC ACID, B-COMPLEX, FOLIC ACID [Concomitant]
     Dosage: 1 CAPSULE
     Route: 048
  16. VANCOMYCIN [Concomitant]
     Active Substance: VANCOMYCIN
     Dosage: 1 GM
     Route: 042
  17. CITALOPRAM [Concomitant]
     Active Substance: CITALOPRAM HYDROBROMIDE
     Dosage: 30 MG
     Route: 048
  18. LEVOTHYROXINE SODIUM. [Concomitant]
     Active Substance: LEVOTHYROXINE SODIUM
     Dosage: 237 MCG
     Route: 048
  19. MIRCERA [Suspect]
     Active Substance: METHOXY POLYETHYLENE GLYCOL-EPOETIN BETA
     Dosage: 225 MICROGRAM WEEKLY
     Dates: start: 20170222, end: 20170427
  20. HYDRALAZINE [Concomitant]
     Active Substance: HYDRALAZINE HYDROCHLORIDE
     Dosage: INTERMITTENTLY
     Route: 048

REACTIONS (14)
  - Pain in extremity [Unknown]
  - Staphylococcal infection [Unknown]
  - Fatigue [Unknown]
  - Vomiting [Unknown]
  - Malaise [Unknown]
  - Anaemia [Unknown]
  - Hypertension [Unknown]
  - Pyrexia [Unknown]
  - Osteomyelitis [Unknown]
  - Nausea [Unknown]
  - Pyomyositis [Unknown]
  - Impaired gastric emptying [Unknown]
  - Peripheral swelling [Unknown]
  - Chills [Unknown]

NARRATIVE: CASE EVENT DATE: 20170507
